FAERS Safety Report 9503996 (Version 1)
Quarter: 2013Q3

REPORT INFORMATION
  Report Type: Spontaneous
  Country: US (occurrence: None)
  Receive Date: 20130905
  Receipt Date: 20130905
  Transmission Date: 20140515
  Serious: Yes (Other)
  Sender: FDA-Public Use
  Company Number: None

PATIENT
  Age: 62 Year
  Sex: Male
  Weight: 90.72 kg

DRUGS (4)
  1. METFORMIN 1000MG [Suspect]
     Indication: TYPE 2 DIABETES MELLITUS
     Dosage: WAS CUT BY 50% I.E. 500 MG TWICE A DAY ON 4/5/13
     Route: 048
     Dates: start: 20130405
  2. MULTIVITAMIN [Concomitant]
  3. ASPIRIN [Concomitant]
  4. FISH OIL CONCENTRATE [Concomitant]

REACTIONS (12)
  - Sexual dysfunction [None]
  - Rash [None]
  - Dizziness [None]
  - Abdominal discomfort [None]
  - Dizziness [None]
  - Fatigue [None]
  - Abdominal discomfort [None]
  - Dyspepsia [None]
  - Dry mouth [None]
  - Blister [None]
  - Dysuria [None]
  - Asthenia [None]
